FAERS Safety Report 7635351-0 (Version None)
Quarter: 2011Q3

REPORT INFORMATION
  Report Type: 
  Country: None (occurrence: None)
  Receive Date: 20110726
  Receipt Date: 20100701
  Transmission Date: 20111222
  Serious: No
  Sender: FDA-Public Use
  Company Number: US-GLAXOSMITHKLINE-A0864018A

PATIENT
  Age: 90 Year
  Sex: Female

DRUGS (4)
  1. SYNTHROID [Concomitant]
  2. TOPROL-XL [Concomitant]
  3. EXTINA [Suspect]
     Indication: FUNGAL INFECTION
     Dosage: 1APP TWICE PER DAY
     Route: 061
     Dates: start: 20100606, end: 20100607
  4. ASPIRIN [Concomitant]

REACTIONS (4)
  - BURNING SENSATION [None]
  - PAIN IN EXTREMITY [None]
  - ERYTHEMA [None]
  - HYPERSENSITIVITY [None]
